FAERS Safety Report 15318883 (Version 1)
Quarter: 2018Q3

REPORT INFORMATION
  Report Type: Spontaneous
  Country: US (occurrence: US)
  Receive Date: 20180820
  Receipt Date: 20180820
  Transmission Date: 20181010
  Serious: Yes (Disabling, Congenital Anomaly)
  Sender: FDA-Public Use
  Company Number: None

PATIENT
  Age: 28 Year
  Sex: Female
  Weight: 60.75 kg

DRUGS (2)
  1. PROAIR ALBUTEROL INHALER [Concomitant]
  2. LEVOTHYROXINE. [Suspect]
     Active Substance: LEVOTHYROXINE
     Indication: HYPOTHYROIDISM
     Dosage: ?          QUANTITY:60 TABLET(S);?
     Route: 048
     Dates: end: 20180416

REACTIONS (7)
  - Therapy change [None]
  - Migraine [None]
  - Premature baby [None]
  - Exposure during pregnancy [None]
  - Thyroid hormones decreased [None]
  - Jaundice neonatal [None]
  - Premature delivery [None]

NARRATIVE: CASE EVENT DATE: 20180207
